FAERS Safety Report 21433484 (Version 1)
Quarter: 2022Q4

REPORT INFORMATION
  Report Type: Spontaneous
  Country: US (occurrence: None)
  Receive Date: 20221010
  Receipt Date: 20221010
  Transmission Date: 20230113
  Serious: No
  Sender: FDA-Public Use
  Company Number: US-ROCHE-3009834

PATIENT
  Age: 68 Year
  Sex: Male
  Weight: 65.830 kg

DRUGS (1)
  1. VEMURAFENIB [Suspect]
     Active Substance: VEMURAFENIB
     Indication: Malignant melanoma
     Dosage: 8 TABLETS DAILY ;ONGOING: YES
     Route: 048
     Dates: start: 20210519

REACTIONS (1)
  - Dysphagia [Not Recovered/Not Resolved]
